FAERS Safety Report 15993120 (Version 2)
Quarter: 2019Q1

REPORT INFORMATION
  Report Type: Report from Study
  Country: CA (occurrence: CA)
  Receive Date: 20190222
  Receipt Date: 20190227
  Transmission Date: 20190418
  Serious: Yes (Other)
  Sender: FDA-Public Use
  Company Number: CA-ROCHE-2264552

PATIENT
  Sex: Female

DRUGS (15)
  1. ACTEMRA [Suspect]
     Active Substance: TOCILIZUMAB
     Indication: RHEUMATOID ARTHRITIS
     Route: 058
  2. GLICLAZIDE [Concomitant]
     Active Substance: GLICLAZIDE
  3. VICTOZA [Concomitant]
     Active Substance: LIRAGLUTIDE
  4. ASA [Concomitant]
     Active Substance: ASPIRIN
  5. PANTOLOC [Concomitant]
     Active Substance: PANTOPRAZOLE SODIUM
  6. ENALAPRIL [Concomitant]
     Active Substance: ENALAPRIL
  7. PANTOPRAZOLE SODIUM. [Concomitant]
     Active Substance: PANTOPRAZOLE SODIUM
  8. METFORMIN [Concomitant]
     Active Substance: METFORMIN HYDROCHLORIDE
  9. SYMBICORT [Concomitant]
     Active Substance: BUDESONIDE\FORMOTEROL FUMARATE DIHYDRATE
  10. AZITHROMYCIN ANHYDROUS. [Concomitant]
     Active Substance: AZITHROMYCIN ANHYDROUS
  11. METHOTREXATE. [Concomitant]
     Active Substance: METHOTREXATE
  12. ATORVASTATIN [Concomitant]
     Active Substance: ATORVASTATIN
  13. DOCUSATE SODIUM. [Concomitant]
     Active Substance: DOCUSATE SODIUM
  14. DULOXETINE. [Concomitant]
     Active Substance: DULOXETINE
  15. METOCLOPRAMIDE. [Concomitant]
     Active Substance: METOCLOPRAMIDE

REACTIONS (2)
  - Fall [Unknown]
  - Humerus fracture [Unknown]
